FAERS Safety Report 4536475-7 (Version None)
Quarter: 2004Q4

REPORT INFORMATION
  Report Type: 
  Country: None (occurrence: None)
  Receive Date: 20041223
  Receipt Date: 20041203
  Transmission Date: 20050328
  Serious: Yes (Hospitalization)
  Sender: FDA-Public Use
  Company Number: US-AMGEN-US102285

PATIENT
  Sex: Male

DRUGS (2)
  1. ENBREL [Suspect]
     Indication: THROMBOCYTOPENIC PURPURA
     Route: 058
     Dates: start: 20041007, end: 20041202
  2. TYLENOL (CAPLET) [Concomitant]

REACTIONS (2)
  - ANAEMIA [None]
  - EVAN'S SYNDROME [None]
